FAERS Safety Report 14718739 (Version 2)
Quarter: 2018Q2

REPORT INFORMATION
  Report Type: Report from Study
  Country: None (occurrence: AU)
  Receive Date: 20180405
  Receipt Date: 20180406
  Transmission Date: 20180711
  Serious: Yes (Other)
  Sender: FDA-Public Use
  Company Number: AU-ABBVIE-18K-008-2312417-00

PATIENT
  Sex: Male

DRUGS (3)
  1. HUMIRA [Suspect]
     Active Substance: ADALIMUMAB
     Indication: ANKYLOSING SPONDYLITIS
     Route: 058
     Dates: start: 20110909
  2. ZOTON [Concomitant]
     Active Substance: LANSOPRAZOLE
     Indication: GASTRITIS
     Route: 048
     Dates: start: 2007
  3. TESTOSTERONE. [Concomitant]
     Active Substance: TESTOSTERONE
     Indication: BLOOD TESTOSTERONE DECREASED
     Route: 058
     Dates: start: 2016

REACTIONS (2)
  - Crohn^s disease [Not Recovered/Not Resolved]
  - Drug level below therapeutic [Unknown]

NARRATIVE: CASE EVENT DATE: 2017
